FAERS Safety Report 23535198 (Version 1)
Quarter: 2024Q1

REPORT INFORMATION
  Report Type: Spontaneous
  Country: FR (occurrence: FR)
  Receive Date: 20240218
  Receipt Date: 20240218
  Transmission Date: 20240410
  Serious: Yes (Life-Threatening, Hospitalization)
  Sender: FDA-Public Use
  Company Number: FR-Accord-403320

PATIENT
  Age: 62 Year
  Sex: Male
  Weight: 99 kg

DRUGS (3)
  1. DOCETAXEL [Suspect]
     Active Substance: DOCETAXEL\DOCETAXEL ANHYDROUS
     Indication: Prostate cancer
     Dosage: STRENGTH: 80 MG, EVERY 21 DAYS
     Route: 042
     Dates: start: 20231126, end: 20231229
  2. ONDANSETRON [Concomitant]
     Active Substance: ONDANSETRON
     Dosage: EVERY 21 DAYS
     Route: 042
     Dates: start: 20231126, end: 20231229
  3. DEXCHLORPHENIRAMINE MALEATE [Concomitant]
     Active Substance: DEXCHLORPHENIRAMINE MALEATE
     Dosage: EVERY 21 DAYS
     Route: 042
     Dates: start: 20231126, end: 20231229

REACTIONS (2)
  - Rash maculo-papular [Not Recovered/Not Resolved]
  - Exfoliative rash [Not Recovered/Not Resolved]

NARRATIVE: CASE EVENT DATE: 20240112
